FAERS Safety Report 10241035 (Version 1)
Quarter: 2014Q2

REPORT INFORMATION
  Report Type: Spontaneous
  Country: US (occurrence: US)
  Receive Date: 20140617
  Receipt Date: 20140617
  Transmission Date: 20141212
  Serious: Yes (Other)
  Sender: FDA-Public Use
  Company Number: US-JNJFOC-20140607191

PATIENT
  Sex: Female

DRUGS (3)
  1. XARELTO [Suspect]
     Indication: KNEE ARTHROPLASTY
     Route: 048
     Dates: start: 201404, end: 201404
  2. NORCO [Concomitant]
     Indication: PAIN
     Route: 065
  3. MULTIVITAMINS [Concomitant]
     Indication: NUTRITIONAL SUPPLEMENTATION
     Route: 065
     Dates: end: 201404

REACTIONS (2)
  - Haemorrhage [Recovered/Resolved]
  - Peripheral swelling [Recovered/Resolved]
